FAERS Safety Report 8793087 (Version 4)
Quarter: 2013Q2

REPORT INFORMATION
  Report Type: Report from Study
  Country: JP (occurrence: JP)
  Receive Date: 20120918
  Receipt Date: 20130628
  Transmission Date: 20140414
  Serious: Yes (Hospitalization, Other)
  Sender: FDA-Public Use
  Company Number: JP-VERTEX PHARMACEUTICAL INC.-AE-2012-007467

PATIENT
  Age: 69 Year
  Sex: Female

DRUGS (6)
  1. VX-950 (TELAPREVIR) [Suspect]
     Indication: CHRONIC HEPATITIS C
     Dosage: 1500 MG, QD
     Route: 048
     Dates: start: 20120313, end: 20120509
  2. RIBAVIRIN [Suspect]
     Indication: CHRONIC HEPATITIS C
     Dosage: 400 MG, QD
     Route: 048
     Dates: start: 20120313, end: 20120410
  3. RIBAVIRIN [Suspect]
     Dosage: 200 MG, QD
     Route: 048
     Dates: start: 20120411, end: 20120418
  4. PEGINTERFERON ALFA-2B [Suspect]
     Indication: CHRONIC HEPATITIS C
     Dosage: 1.5 ?G/KG, QW
     Route: 058
     Dates: start: 20120313, end: 20120502
  5. ZOMIG [Concomitant]
     Dosage: 2.5 MG, PRN
     Route: 048
  6. SELBEX [Concomitant]
     Dosage: 50 MG, PRN
     Route: 048
     Dates: start: 20120314, end: 20120318

REACTIONS (4)
  - Decreased appetite [Recovered/Resolved]
  - Malaise [Recovered/Resolved]
  - Haemoglobin decreased [Recovered/Resolved]
  - Nausea [Recovered/Resolved]
